FAERS Safety Report 7631169-3 (Version None)
Quarter: 2011Q3

REPORT INFORMATION
  Report Type: 
  Country: None (occurrence: None)
  Receive Date: 20110725
  Receipt Date: 20110711
  Transmission Date: 20111222
  Serious: Yes (Other)
  Sender: FDA-Public Use
  Company Number: US-RANBAXY-2011US-46175

PATIENT

DRUGS (2)
  1. CALAN [Suspect]
     Dosage: 120 MG, UNK
     Route: 065
  2. CALAN [Suspect]
     Indication: PRODUCT USED FOR UNKNOWN INDICATION
     Dosage: 240 MG, QD
     Route: 065

REACTIONS (3)
  - DRUG DISPENSING ERROR [None]
  - LOSS OF CONSCIOUSNESS [None]
  - MEDICATION ERROR [None]
